FAERS Safety Report 23279987 (Version 2)
Quarter: 2024Q3

REPORT INFORMATION
  Report Type: Spontaneous
  Country: US (occurrence: US)
  Receive Date: 20231210
  Receipt Date: 20240816
  Transmission Date: 20241016
  Serious: No
  Sender: LUPIN
  Company Number: US-LUPIN PHARMACEUTICALS INC.-2023-10949

PATIENT

DRUGS (2)
  1. ALBUTEROL SULFATE [Suspect]
     Active Substance: ALBUTEROL SULFATE
     Indication: Asthma
     Dosage: UNK, 1-2 PUFFS
     Dates: start: 20231120
  2. ADVAIR HFA [Concomitant]
     Active Substance: FLUTICASONE PROPIONATE\SALMETEROL XINAFOATE
     Indication: Product used for unknown indication
     Dosage: UNK
     Route: 065

REACTIONS (6)
  - Drug dose omission by device [Unknown]
  - Device malfunction [Unknown]
  - Device deposit issue [Unknown]
  - Device delivery system issue [Unknown]
  - Device physical property issue [Unknown]
  - No adverse event [Unknown]
